FAERS Safety Report 4991081-5 (Version None)
Quarter: 2006Q2

REPORT INFORMATION
  Report Type: 
  Country: None (occurrence: None)
  Receive Date: 20060428
  Receipt Date: 20060417
  Transmission Date: 20061013
  Serious: Yes (Death, Hospitalization)
  Sender: FDA-Public Use
  Company Number: 2006-BP-04301RO

PATIENT
  Age: 28 Year
  Sex: Female

DRUGS (8)
  1. PREDNISONE TAB [Suspect]
     Indication: IMMUNOSUPPRESSION
     Dosage: 0.6 MG/KG QD TAPER TO 10 MG/D
  2. PREDNISONE TAB [Suspect]
     Indication: TRANSPLANT
     Dosage: 0.6 MG/KG QD TAPER TO 10 MG/D
  3. CYCLOSPORINE [Suspect]
     Indication: IMMUNOSUPPRESSION
  4. CYCLOSPORINE [Suspect]
     Indication: TRANSPLANT
  5. MYCOPHENOLATE (MYCOPHENOLATE MOFETIL) [Suspect]
     Indication: IMMUNOSUPPRESSION
     Dosage: 3 GMDAY
  6. MYCOPHENOLATE (MYCOPHENOLATE MOFETIL) [Suspect]
     Indication: TRANSPLANT
     Dosage: 3 GMDAY
  7. VALGANCICLOVIR HCL [Suspect]
     Indication: ANTIVIRAL PROPHYLAXIS
     Dosage: 450 MG/DAY
  8. ITRACONAZOLE [Suspect]
     Indication: ANTIFUNGAL PROPHYLAXIS
     Dosage: 200 MG/DAY

REACTIONS (12)
  - ASPERGILLOSIS [None]
  - CARDIAC FAILURE [None]
  - CEREBRAL FUNGAL INFECTION [None]
  - CEREBRAL HAEMORRHAGE [None]
  - CEREBROVASCULAR ACCIDENT [None]
  - ENDOPHTHALMITIS [None]
  - EYE INFECTION FUNGAL [None]
  - FUNGAL ENDOCARDITIS [None]
  - HEADACHE [None]
  - LOSS OF CONSCIOUSNESS [None]
  - MITRAL VALVE INCOMPETENCE [None]
  - ORAL INFECTION [None]
